FAERS Safety Report 4717752-3 (Version None)
Quarter: 2005Q3

REPORT INFORMATION
  Report Type: 
  Country: None (occurrence: None)
  Receive Date: 20050715
  Receipt Date: 20040525
  Transmission Date: 20060218
  Serious: Yes (Life-Threatening)
  Sender: FDA-Public Use
  Company Number: M04-INT-083

PATIENT
  Age: 71 Year
  Sex: Male
  Weight: 148 kg

DRUGS (5)
  1. INTEGRILIN [Suspect]
     Indication: CORONARY ARTERY THROMBOSIS
     Dosage: 11.30 ML X2, UNK, IV BOLUS
     Route: 040
     Dates: start: 20040401, end: 20040401
  2. LOVENOX [Concomitant]
  3. ASPIRIN [Concomitant]
  4. PLAVIX [Concomitant]
  5. HEPARIN [Concomitant]

REACTIONS (3)
  - EPISTAXIS [None]
  - INJECTION SITE HAEMORRHAGE [None]
  - THROMBOCYTOPENIA [None]
